FAERS Safety Report 8530509-0 (Version None)
Quarter: 2012Q3

REPORT INFORMATION
  Report Type: 
  Country: None (occurrence: None)
  Receive Date: 20120723
  Receipt Date: 20120717
  Transmission Date: 20120928
  Serious: Yes (Other)
  Sender: FDA-Public Use
  Company Number: US-PFIZER INC-2012173545

PATIENT
  Age: 68 Year
  Sex: Female
  Weight: 61.224 kg

DRUGS (4)
  1. PREMARIN [Suspect]
     Indication: PREMATURE MENOPAUSE
     Dosage: UNK
  2. PREMPRO [Suspect]
     Indication: PREMATURE MENOPAUSE
     Dosage: 0.625/2.5 MG, DAILY
  3. PREMPRO [Suspect]
     Dosage: 0.625/2.5 MG, EVERY OTHER DAY
  4. PROVERA [Suspect]
     Indication: PREMATURE MENOPAUSE
     Dosage: UNK

REACTIONS (3)
  - OSTEOARTHRITIS [None]
  - SHOULDER OPERATION [None]
  - INTERVERTEBRAL DISC DEGENERATION [None]
